FAERS Safety Report 16612126 (Version 1)
Quarter: 2019Q3

REPORT INFORMATION
  Report Type: Spontaneous
  Country: US (occurrence: US)
  Receive Date: 20190722
  Receipt Date: 20190722
  Transmission Date: 20191004
  Serious: Yes (Other)
  Sender: FDA-Public Use
  Company Number: PHHY2019US166652

PATIENT
  Age: 76 Year
  Sex: Male

DRUGS (6)
  1. BENZYLPENICILLIN [Suspect]
     Active Substance: PENICILLIN G
     Indication: ENDOCARDITIS ENTEROCOCCAL
     Route: 065
  2. VANCOMYCIN [Suspect]
     Active Substance: VANCOMYCIN
     Indication: ENTEROCOCCAL BACTERAEMIA
     Route: 065
  3. VANCOMYCIN [Suspect]
     Active Substance: VANCOMYCIN
     Indication: ENDOCARDITIS ENTEROCOCCAL
  4. BENZYLPENICILLIN [Suspect]
     Active Substance: PENICILLIN G
     Indication: ENTEROCOCCAL BACTERAEMIA
  5. GENTAMYCIN [Suspect]
     Active Substance: GENTAMICIN
     Indication: ENDOCARDITIS ENTEROCOCCAL
     Route: 065
  6. GENTAMYCIN [Suspect]
     Active Substance: GENTAMICIN
     Indication: ENTEROCOCCAL BACTERAEMIA

REACTIONS (1)
  - Drug reaction with eosinophilia and systemic symptoms [Unknown]
